FAERS Safety Report 9442141 (Version 1)
Quarter: 2013Q3

REPORT INFORMATION
  Report Type: Report from Study
  Country: US (occurrence: US)
  Receive Date: 20130806
  Receipt Date: 20130806
  Transmission Date: 20140515
  Serious: Yes (Death, Other)
  Sender: FDA-Public Use
  Company Number: PHEH2013US012630

PATIENT
  Age: 82 Year
  Sex: Male
  Weight: 59.5 kg

DRUGS (6)
  1. GLEEVEC [Suspect]
     Indication: MALIGNANT MELANOMA
     Dosage: 400 MG, DAILY
     Route: 048
     Dates: start: 20121030, end: 20121122
  2. GLEEVEC [Suspect]
     Dosage: 400 MG, DAILY
     Route: 048
     Dates: end: 20130504
  3. KEPPRA [Concomitant]
     Indication: CONVULSION
     Dosage: 500 MG, BID
     Route: 048
     Dates: start: 20130407, end: 20130504
  4. PEPCID [Concomitant]
     Indication: DYSPEPSIA
     Dosage: 20 MG, BID
     Route: 048
     Dates: start: 20130402, end: 20130504
  5. TOPROL XL [Concomitant]
     Indication: BLOOD PRESSURE
     Dosage: 125 MG
     Route: 048
     Dates: end: 20130504
  6. DECADRON                                /CAN/ [Concomitant]
     Indication: BRAIN MASS
     Dosage: 4 MG, TID
     Dates: start: 20130404

REACTIONS (8)
  - Brain neoplasm [Fatal]
  - Hepatic neoplasm [Fatal]
  - Second primary malignancy [Fatal]
  - Malignant melanoma [Fatal]
  - Malignant neoplasm progression [Fatal]
  - Lung neoplasm malignant [Unknown]
  - Metastasis [Unknown]
  - Aortic calcification [Unknown]
